FAERS Safety Report 6343563-1 (Version None)
Quarter: 2009Q3

REPORT INFORMATION
  Report Type: 
  Country: None (occurrence: None)
  Receive Date: 20090904
  Receipt Date: 20090904
  Transmission Date: 20100115
  Serious: Yes (Hospitalization)
  Sender: FDA-Public Use
  Company Number: None

PATIENT
  Age: 83 Year
  Sex: Female
  Weight: 72 kg

DRUGS (11)
  1. DIGOXIN [Suspect]
     Indication: ARRHYTHMIA
     Dosage: 0.25MG 0.25 DAILY ORAL
     Route: 048
     Dates: start: 20090225, end: 20090302
  2. AMIODARONE HCL [Concomitant]
  3. NEXIUM [Concomitant]
  4. LIPITOR [Concomitant]
  5. FOLIC ACID [Concomitant]
  6. BUMEX [Concomitant]
  7. METHOTREXATE [Concomitant]
  8. PLAVIX [Concomitant]
  9. METOLAZONE [Concomitant]
  10. CARDIZEM [Concomitant]
  11. PREDNISONE [Concomitant]

REACTIONS (1)
  - CARDIOACTIVE DRUG LEVEL INCREASED [None]
